FAERS Safety Report 7069902-4 (Version None)
Quarter: 2010Q4

REPORT INFORMATION
  Report Type: 
  Country: None (occurrence: None)
  Receive Date: 20101028
  Receipt Date: 20100701
  Transmission Date: 20110411
  Serious: No
  Sender: FDA-Public Use
  Company Number: US-WYE-H16153810

PATIENT
  Age: 2 Year
  Sex: Female

DRUGS (2)
  1. CHILDREN'S ADVIL [Suspect]
     Indication: PYREXIA
     Dosage: UNKNOWN
     Route: 048
     Dates: start: 20100628, end: 20100630
  2. AMOXICILLIN [Concomitant]

REACTIONS (3)
  - CONDITION AGGRAVATED [None]
  - NAUSEA [None]
  - STOMATITIS [None]
